FAERS Safety Report 8911521 (Version 1)
Quarter: 2012Q4

REPORT INFORMATION
  Report Type: Spontaneous
  Country: US (occurrence: None)
  Receive Date: 20121114
  Receipt Date: 20121114
  Transmission Date: 20130627
  Serious: No
  Sender: FDA-Public Use
  Company Number: None

PATIENT
  Sex: Female

DRUGS (2)
  1. COPAXONE [Suspect]
     Indication: MS
     Dates: start: 201205, end: 201209
  2. COPAXONE [Suspect]
     Indication: MS
     Dates: start: 201210, end: 20121102

REACTIONS (3)
  - Rash [None]
  - Rash [None]
  - Rash [None]
